FAERS Safety Report 15476552 (Version 1)
Quarter: 2018Q4

REPORT INFORMATION
  Report Type: Spontaneous
  Country: US (occurrence: US)
  Receive Date: 20181001
  Receipt Date: 20181001
  Transmission Date: 20190205
  Serious: Yes (Hospitalization)
  Sender: FDA-Public Use
  Company Number: None

PATIENT
  Age: 17 Year
  Sex: Female

DRUGS (7)
  1. CREON [Suspect]
     Active Substance: PANCRELIPASE AMYLASE\PANCRELIPASE LIPASE\PANCRELIPASE PROTEASE
     Indication: CYSTIC FIBROSIS
     Dosage: 3 CAPS W/MEALS, 2 CAPS W/SNACKS + 3 CAPS W/TUBE FEEDS; BY MOUTH AND TUBE FEED?
     Route: 048
     Dates: start: 20160105
  2. ALBUTEROL. [Concomitant]
     Active Substance: ALBUTEROL
  3. SOD CHLORIDE 7% [Concomitant]
     Active Substance: SODIUM CHLORIDE
  4. CYPROHEPTADINE. [Concomitant]
     Active Substance: CYPROHEPTADINE
  5. CREON [Suspect]
     Active Substance: PANCRELIPASE AMYLASE\PANCRELIPASE LIPASE\PANCRELIPASE PROTEASE
     Dosage: ?          OTHER DOSE:3 CAPS W/TUBE FEED;?
  6. FLOVENT HFA [Concomitant]
     Active Substance: FLUTICASONE PROPIONATE
  7. CREON [Suspect]
     Active Substance: PANCRELIPASE AMYLASE\PANCRELIPASE LIPASE\PANCRELIPASE PROTEASE
     Dosage: ?          OTHER DOSE:2 CAPS W/SNACKS;?

REACTIONS (2)
  - Feeding disorder [None]
  - Fluid intake reduced [None]

NARRATIVE: CASE EVENT DATE: 20180912
